FAERS Safety Report 13255678 (Version 11)
Quarter: 2017Q3

REPORT INFORMATION
  Report Type: Report from Study
  Country: PL (occurrence: PL)
  Receive Date: 20170221
  Receipt Date: 20170721
  Transmission Date: 20171127
  Serious: Yes (Life-Threatening)
  Sender: FDA-Public Use
  Company Number: PL-PFIZER INC-2016592982

PATIENT
  Age: 47 Year
  Sex: Female
  Weight: 84 kg

DRUGS (4)
  1. CLEMASTIN [Concomitant]
     Active Substance: CLEMASTINE
     Indication: PROPHYLAXIS
     Dosage: 2 MG, 1X/DAY
     Route: 048
     Dates: start: 20161215, end: 20161215
  2. DEXAMETHASONE. [Concomitant]
     Active Substance: DEXAMETHASONE
     Indication: PROPHYLAXIS
     Dosage: 8 MG, 2X/DAY
     Route: 048
     Dates: start: 20161215, end: 20161216
  3. LETROX [Concomitant]
     Active Substance: LEVOTHYROXINE SODIUM
     Indication: HYPOTHYROIDISM
     Dosage: 125 MG, 1X/DAY
     Route: 048
     Dates: start: 20101010
  4. DOCETAXEL. [Suspect]
     Active Substance: DOCETAXEL
     Indication: NON-SMALL CELL LUNG CANCER
     Dosage: 148.5 MG, EVERY 3 WEEKS
     Route: 042
     Dates: start: 20161124, end: 20161215

REACTIONS (1)
  - Loss of consciousness [Recovered/Resolved]

NARRATIVE: CASE EVENT DATE: 20161215
